FAERS Safety Report 4977272-8 (Version None)
Quarter: 2006Q2

REPORT INFORMATION
  Report Type: 
  Country: None (occurrence: None)
  Receive Date: 20060419
  Receipt Date: 20050826
  Transmission Date: 20061013
  Serious: Yes (Hospitalization, Disabling)
  Sender: FDA-Public Use
  Company Number: US-MERCK-0508USA04666

PATIENT
  Age: 59 Year
  Sex: Male
  Weight: 87 kg

DRUGS (3)
  1. VIOXX [Suspect]
     Indication: SHOULDER PAIN
     Route: 048
     Dates: start: 20010321, end: 20020802
  2. VIOXX [Suspect]
     Indication: ROTATOR CUFF SYNDROME
     Route: 048
     Dates: start: 20010321, end: 20020802
  3. CLARITIN [Concomitant]
     Route: 065

REACTIONS (19)
  - ADJUSTMENT DISORDER WITH ANXIETY [None]
  - ANXIETY DISORDER [None]
  - ARTERIOSCLEROSIS CORONARY ARTERY [None]
  - CHOLELITHIASIS [None]
  - CORONARY ARTERY OCCLUSION [None]
  - DIABETES MELLITUS NON-INSULIN-DEPENDENT [None]
  - DIARRHOEA [None]
  - EPISTAXIS [None]
  - ERECTILE DYSFUNCTION [None]
  - GROIN PAIN [None]
  - HEPATITIS CHOLESTATIC [None]
  - ISCHAEMIC CARDIOMYOPATHY [None]
  - LOCALISED INFECTION [None]
  - MYOCARDIAL INFARCTION [None]
  - NECK PAIN [None]
  - NON-CARDIAC CHEST PAIN [None]
  - PERICARDIAL EFFUSION [None]
  - PURPURA [None]
  - STOMACH DISCOMFORT [None]
